FAERS Safety Report 9476236 (Version 1)
Quarter: 2013Q3

REPORT INFORMATION
  Report Type: Spontaneous
  Country: US (occurrence: None)
  Receive Date: 20130823
  Receipt Date: 20130823
  Transmission Date: 20140515
  Serious: Yes (Hospitalization)
  Sender: FDA-Public Use
  Company Number: None

PATIENT
  Age: 54 Year
  Sex: Male
  Weight: 125.2 kg

DRUGS (1)
  1. CLARITHROMYCIN [Suspect]
     Indication: INFECTION
     Dosage: 500 MG BID PO
     Dates: start: 20130319, end: 20130326

REACTIONS (5)
  - Pyrexia [None]
  - Chills [None]
  - Vomiting [None]
  - Diarrhoea [None]
  - Clostridial infection [None]
